FAERS Safety Report 19502553 (Version 2)
Quarter: 2021Q3

REPORT INFORMATION
  Report Type: Spontaneous
  Country: IT (occurrence: IT)
  Receive Date: 20210707
  Receipt Date: 20210803
  Transmission Date: 20211014
  Serious: Yes (Hospitalization, Other)
  Sender: FDA-Public Use
  Company Number: IT-SAMSUNG BIOEPIS-SB-2021-16411

PATIENT
  Age: 10 Year
  Sex: Male

DRUGS (5)
  1. MESALAZINE [Suspect]
     Active Substance: MESALAMINE
     Indication: INFLAMMATORY BOWEL DISEASE
     Dosage: UNKNOWN
     Route: 048
     Dates: start: 201001, end: 201601
  2. INFLIXIMAB [Suspect]
     Active Substance: INFLIXIMAB
     Indication: INFLAMMATORY BOWEL DISEASE
     Dosage: INCREASED DOSE
     Route: 065
     Dates: start: 201806, end: 202009
  3. MESALAZINE [Suspect]
     Active Substance: MESALAMINE
     Dosage: UNKNOWN
     Route: 061
     Dates: start: 2010, end: 2010
  4. MESALAZINE [Suspect]
     Active Substance: MESALAMINE
     Dosage: UNKNOWN
     Route: 061
     Dates: start: 2020, end: 2020
  5. MESALAZINE [Suspect]
     Active Substance: MESALAMINE
     Dosage: UNKNOWN
     Route: 054

REACTIONS (10)
  - Product use in unapproved indication [Recovered/Resolved]
  - Off label use [Recovered/Resolved]
  - Inflammatory bowel disease [Recovered/Resolved]
  - Drug resistance [Unknown]
  - Tubulointerstitial nephritis [Recovering/Resolving]
  - Acute kidney injury [Recovered/Resolved]
  - Haematuria [Unknown]
  - Contraindicated product administered [Recovered/Resolved]
  - Labelled drug-disease interaction medication error [Recovered/Resolved]
  - Product use issue [Recovered/Resolved]

NARRATIVE: CASE EVENT DATE: 201001
